FAERS Safety Report 6574267-8 (Version None)
Quarter: 2010Q1

REPORT INFORMATION
  Report Type: 
  Country: None (occurrence: None)
  Receive Date: 20100208
  Receipt Date: 20100125
  Transmission Date: 20100710
  Serious: Yes (Death)
  Sender: FDA-Public Use
  Company Number: GB-BAUSCH-2010BL000455

PATIENT

DRUGS (2)
  1. PREDNISOLONE [Suspect]
     Indication: INFANTILE SPASMS
     Route: 048
  2. VIGABATRIN [Concomitant]
     Indication: INFANTILE SPASMS

REACTIONS (1)
  - STAPHYLOCOCCAL SEPSIS [None]
